FAERS Safety Report 9851826 (Version 1)
Quarter: 2014Q1

REPORT INFORMATION
  Report Type: Spontaneous
  Country: US (occurrence: None)
  Receive Date: 20140127
  Receipt Date: 20140127
  Transmission Date: 20141002
  Serious: Yes (Other)
  Sender: FDA-Public Use
  Company Number: 2014P1000503

PATIENT
  Age: 17 Year
  Sex: Male

DRUGS (1)
  1. MYORISAN 40 MG [Suspect]
     Dates: start: 20131231

REACTIONS (1)
  - Suicidal ideation [None]
